FAERS Safety Report 20711956 (Version 2)
Quarter: 2022Q2

REPORT INFORMATION
  Report Type: Spontaneous
  Country: JP (occurrence: JP)
  Receive Date: 20220414
  Receipt Date: 20220422
  Transmission Date: 20220721
  Serious: No
  Sender: FDA-Public Use
  Company Number: JP-UCBSA-2022021426

PATIENT

DRUGS (1)
  1. NEUPRO [Suspect]
     Active Substance: ROTIGOTINE
     Indication: Product used for unknown indication
     Dosage: 1MG, UNK
     Route: 062

REACTIONS (2)
  - Product adhesion issue [Unknown]
  - Drug dose titration not performed [Unknown]
